FAERS Safety Report 5857890-5 (Version None)
Quarter: 2008Q3

REPORT INFORMATION
  Report Type: 
  Country: None (occurrence: None)
  Receive Date: 20080822
  Receipt Date: 20080807
  Transmission Date: 20090109
  Serious: Yes (Other)
  Sender: FDA-Public Use
  Company Number: 2008S1014562

PATIENT
  Age: 86 Year
  Sex: Female

DRUGS (11)
  1. ALENDRONIC ACID (ALENDRONIC ACID) [Suspect]
     Indication: OSTEOPOROSIS PROPHYLAXIS
     Dosage: 70 MG ORAL
     Route: 048
  2. ADCAL /00108001/ [Concomitant]
  3. ASPIRIN [Concomitant]
  4. CHLORPHENIRAMINE MALEATE [Concomitant]
  5. FRUSEMIDE [Concomitant]
  6. LATANOPROST [Concomitant]
  7. LISINOPRIL [Concomitant]
  8. OMEPRAZOLE [Concomitant]
  9. PREDNISOLONE [Concomitant]
  10. TIMOLOL [Concomitant]
  11. UNIVER [Concomitant]

REACTIONS (1)
  - ATRIAL FIBRILLATION [None]
